FAERS Safety Report 15053159 (Version 2)
Quarter: 2018Q3

REPORT INFORMATION
  Report Type: Spontaneous
  Country: US (occurrence: US)
  Receive Date: 20180622
  Receipt Date: 20180808
  Transmission Date: 20181010
  Serious: Yes (Other)
  Sender: FDA-Public Use
  Company Number: US-BAUSCH-BL-2018-017287

PATIENT
  Age: 70 Year
  Sex: Female
  Weight: 108.96 kg

DRUGS (4)
  1. SINGULAIR [Concomitant]
     Active Substance: MONTELUKAST SODIUM
     Indication: PRODUCT USED FOR UNKNOWN INDICATION
     Route: 065
  2. XIFAXAN [Suspect]
     Active Substance: RIFAXIMIN
     Indication: IRRITABLE BOWEL SYNDROME
     Route: 048
     Dates: start: 20180518, end: 20180603
  3. SYNTHROID [Concomitant]
     Active Substance: LEVOTHYROXINE SODIUM
     Indication: PRODUCT USED FOR UNKNOWN INDICATION
  4. TOPROL XL [Concomitant]
     Active Substance: METOPROLOL SUCCINATE
     Indication: PRODUCT USED FOR UNKNOWN INDICATION

REACTIONS (12)
  - Gastrooesophageal reflux disease [Recovering/Resolving]
  - Dyspnoea [Recovered/Resolved]
  - Feeding disorder [Recovering/Resolving]
  - Insomnia [Recovering/Resolving]
  - Productive cough [Recovering/Resolving]
  - Aphasia [Recovered/Resolved]
  - Loss of personal independence in daily activities [Not Recovered/Not Resolved]
  - Wrong technique in product usage process [Recovered/Resolved]
  - Weight decreased [Not Recovered/Not Resolved]
  - Throat irritation [Recovering/Resolving]
  - Drug dose omission [Recovered/Resolved]
  - Laryngospasm [Recovering/Resolving]

NARRATIVE: CASE EVENT DATE: 2018
